FAERS Safety Report 15797772 (Version 1)
Quarter: 2019Q1

REPORT INFORMATION
  Report Type: Spontaneous
  Country: US (occurrence: US)
  Receive Date: 20190108
  Receipt Date: 20190108
  Transmission Date: 20190417
  Serious: No
  Sender: FDA-Public Use
  Company Number: US-PFIZER INC-2019010094

PATIENT
  Sex: Female

DRUGS (3)
  1. AVASTIN [Suspect]
     Active Substance: BEVACIZUMAB
     Dosage: UNK
     Dates: end: 2018
  2. CARBOPLATIN. [Suspect]
     Active Substance: CARBOPLATIN
     Dosage: UNK
     Dates: end: 2018
  3. TAXOL [Suspect]
     Active Substance: PACLITAXEL
     Dosage: UNK
     Dates: end: 2018

REACTIONS (2)
  - Alopecia [Unknown]
  - Hypothyroidism [Unknown]
